FAERS Safety Report 4313759-9 (Version None)
Quarter: 2004Q1

REPORT INFORMATION
  Report Type: 
  Country: None (occurrence: None)
  Receive Date: 20040305
  Receipt Date: 20040304
  Transmission Date: 20041129
  Serious: Yes (Other)
  Sender: FDA-Public Use
  Company Number: USA-2004-0013563

PATIENT
  Age: 35 Year
  Sex: Male

DRUGS (2)
  1. CHIROCAINE [Suspect]
     Indication: ANAESTHESIA
     Dosage: 20 ML, SINGLE, OTHER
     Route: 050
  2. LIDOCAINE [Suspect]
     Indication: ANAESTHESIA
     Dosage: 20 ML, SINGLE, OTHER
     Route: 050

REACTIONS (5)
  - BLOOD PRESSURE INCREASED [None]
  - GRAND MAL CONVULSION [None]
  - MEDICATION ERROR [None]
  - OXYGEN SATURATION DECREASED [None]
  - SINUS TACHYCARDIA [None]
